FAERS Safety Report 9952166 (Version 1)
Quarter: 2014Q1

REPORT INFORMATION
  Report Type: Spontaneous
  Country: US (occurrence: US)
  Receive Date: 20140304
  Receipt Date: 20140304
  Transmission Date: 20141002
  Serious: No
  Sender: FDA-Public Use
  Company Number: US-ABBVIE-13P-163-1071763-00

PATIENT
  Age: 39 Year
  Sex: Male
  Weight: 88.08 kg

DRUGS (2)
  1. HUMIRA [Suspect]
     Indication: COLITIS ULCERATIVE
     Dates: start: 20130209, end: 20130209
  2. HUMIRA [Suspect]
     Dates: start: 20130323

REACTIONS (2)
  - Drug prescribing error [Not Recovered/Not Resolved]
  - Incorrect dose administered [Unknown]
